FAERS Safety Report 15392653 (Version 1)
Quarter: 2018Q3

REPORT INFORMATION
  Report Type: Spontaneous
  Country: US (occurrence: US)
  Receive Date: 20180917
  Receipt Date: 20180917
  Transmission Date: 20181010
  Serious: No
  Sender: FDA-Public Use
  Company Number: US-JNJFOC-20180839240

PATIENT
  Sex: Female

DRUGS (13)
  1. TYLENOL [Suspect]
     Active Substance: ACETAMINOPHEN
     Indication: HYPOAESTHESIA
     Route: 065
     Dates: start: 201808
  2. TYLENOL [Suspect]
     Active Substance: ACETAMINOPHEN
     Indication: TREMOR
     Route: 065
     Dates: start: 201808
  3. PREDNISONE. [Concomitant]
     Active Substance: PREDNISONE
     Indication: TREMOR
     Route: 042
     Dates: start: 201808
  4. PREDNISONE. [Concomitant]
     Active Substance: PREDNISONE
     Indication: MIGRAINE
     Route: 042
     Dates: start: 201808
  5. BENADRYL [Suspect]
     Active Substance: DIPHENHYDRAMINE HYDROCHLORIDE
     Indication: TREMOR
     Route: 065
     Dates: start: 201808
  6. BENADRYL [Suspect]
     Active Substance: DIPHENHYDRAMINE HYDROCHLORIDE
     Indication: DIZZINESS
     Route: 065
     Dates: start: 201808
  7. PREDNISONE. [Concomitant]
     Active Substance: PREDNISONE
     Indication: DIZZINESS
     Route: 042
     Dates: start: 201808
  8. PREDNISONE. [Concomitant]
     Active Substance: PREDNISONE
     Indication: HYPOAESTHESIA
     Route: 042
     Dates: start: 201808
  9. STELARA [Concomitant]
     Active Substance: USTEKINUMAB
     Indication: CROHN^S DISEASE
     Route: 042
     Dates: start: 20180821
  10. BENADRYL [Suspect]
     Active Substance: DIPHENHYDRAMINE HYDROCHLORIDE
     Indication: MIGRAINE
     Route: 065
     Dates: start: 201808
  11. TYLENOL [Suspect]
     Active Substance: ACETAMINOPHEN
     Indication: DIZZINESS
     Route: 065
     Dates: start: 201808
  12. TYLENOL [Suspect]
     Active Substance: ACETAMINOPHEN
     Indication: MIGRAINE
     Route: 065
     Dates: start: 201808
  13. BENADRYL [Suspect]
     Active Substance: DIPHENHYDRAMINE HYDROCHLORIDE
     Indication: HYPOAESTHESIA
     Route: 065
     Dates: start: 201808

REACTIONS (2)
  - Therapeutic response unexpected [Unknown]
  - Product use in unapproved indication [Unknown]

NARRATIVE: CASE EVENT DATE: 201808
